FAERS Safety Report 21172726 (Version 8)
Quarter: 2023Q1

REPORT INFORMATION
  Report Type: Report from Study
  Country: MX (occurrence: MX)
  Receive Date: 20220804
  Receipt Date: 20230220
  Transmission Date: 20230418
  Serious: Yes (Other)
  Sender: FDA-Public Use
  Company Number: MX-NOVARTISPH-NVSC2022MX173989

PATIENT
  Age: 45 Year
  Sex: Female

DRUGS (2)
  1. KISQALI [Suspect]
     Active Substance: RIBOCICLIB
     Indication: Breast cancer
     Dosage: UNK
     Route: 048
     Dates: start: 202202
  2. KISQALI [Suspect]
     Active Substance: RIBOCICLIB
     Dosage: UNK
     Route: 048

REACTIONS (43)
  - Breast cancer recurrent [Unknown]
  - Suicidal ideation [Unknown]
  - Connective tissue disorder [Unknown]
  - Diabetes mellitus [Unknown]
  - Overweight [Unknown]
  - Abdominal discomfort [Unknown]
  - Emotional disorder [Unknown]
  - Crying [Unknown]
  - Feeling of body temperature change [Unknown]
  - Discharge [Not Recovered/Not Resolved]
  - Mood altered [Unknown]
  - Pain [Unknown]
  - Acne [Not Recovered/Not Resolved]
  - Peripheral swelling [Unknown]
  - Pruritus [Not Recovered/Not Resolved]
  - Insomnia [Unknown]
  - Contusion [Unknown]
  - Scratch [Unknown]
  - Oropharyngeal pain [Not Recovered/Not Resolved]
  - Speech disorder [Not Recovered/Not Resolved]
  - Dysstasia [Unknown]
  - Limb discomfort [Unknown]
  - Pelvic pain [Not Recovered/Not Resolved]
  - Pain in extremity [Unknown]
  - Skin wrinkling [Unknown]
  - Pulmonary pain [Unknown]
  - Arthralgia [Unknown]
  - Musculoskeletal pain [Unknown]
  - Feeling abnormal [Unknown]
  - Malaise [Unknown]
  - Illness [Unknown]
  - Depressed mood [Unknown]
  - Feeling of despair [Unknown]
  - Dizziness [Unknown]
  - Influenza [Not Recovered/Not Resolved]
  - Pyrexia [Unknown]
  - Cough [Unknown]
  - Muscle spasms [Unknown]
  - Gait disturbance [Unknown]
  - Alopecia [Unknown]
  - Fatigue [Unknown]
  - Headache [Unknown]
  - Asthenia [Unknown]

NARRATIVE: CASE EVENT DATE: 20220601
